FAERS Safety Report 21293290 (Version 1)
Quarter: 2022Q3

REPORT INFORMATION
  Report Type: Report from Study
  Country: CA (occurrence: CA)
  Receive Date: 20220905
  Receipt Date: 20220905
  Transmission Date: 20221026
  Serious: Yes (Other)
  Sender: FDA-Public Use
  Company Number: CA-TEVA-2022-CA-2069261

PATIENT
  Age: 86 Year
  Sex: Male

DRUGS (2)
  1. OCTREOTIDE [Suspect]
     Active Substance: OCTREOTIDE
     Indication: Carcinoid tumour
     Route: 030
     Dates: start: 20220309
  2. Sando LAR [Concomitant]
     Indication: Product used for unknown indication

REACTIONS (3)
  - Colon cancer metastatic [Unknown]
  - Hepatic cancer metastatic [Unknown]
  - Metastases to lung [Unknown]

NARRATIVE: CASE EVENT DATE: 20220101
